FAERS Safety Report 15397417 (Version 1)
Quarter: 2018Q3

REPORT INFORMATION
  Report Type: Spontaneous
  Country: JP (occurrence: JP)
  Receive Date: 20180918
  Receipt Date: 20180918
  Transmission Date: 20181010
  Serious: Yes (Other)
  Sender: FDA-Public Use
  Company Number: JP-DSJP-DSJ-2018-140299

PATIENT

DRUGS (2)
  1. ASPIRIN                            /00002701/ [Suspect]
     Active Substance: ASPIRIN
     Dosage: 900 MG, TOTAL
     Route: 048
  2. LIXIANA TABLETS [Suspect]
     Active Substance: EDOXABAN TOSYLATE
     Indication: ATRIAL FIBRILLATION
     Dosage: 270 MG, TOTAL
     Route: 048

REACTIONS (6)
  - Epistaxis [Unknown]
  - Abdominal pain upper [Unknown]
  - Overdose [Unknown]
  - Cholecystitis [Unknown]
  - Coagulation test abnormal [Recovering/Resolving]
  - Pharyngeal haemorrhage [Unknown]
